FAERS Safety Report 8088931-5 (Version None)
Quarter: 2012Q1

REPORT INFORMATION
  Report Type: 
  Country: None (occurrence: None)
  Receive Date: 20120128
  Receipt Date: 20110623
  Transmission Date: 20120608
  Serious: No
  Sender: FDA-Public Use
  Company Number: US-ABBOTT-11P-163-0734768-00

PATIENT
  Age: 48 Year
  Sex: Female

DRUGS (4)
  1. METHOTREXATE [Concomitant]
     Indication: PRODUCT USED FOR UNKNOWN INDICATION
     Dosage: NINE PILLS WEEKLY
  2. HUMIRA [Suspect]
     Indication: PSORIATIC ARTHROPATHY
     Dates: start: 20110501
  3. TOPROL-XL [Concomitant]
     Indication: HYPERTENSION
  4. AMBIEN [Concomitant]
     Indication: INSOMNIA
     Dosage: ONE NIGHTLY

REACTIONS (1)
  - NAUSEA [None]
